FAERS Safety Report 9233093 (Version 1)
Quarter: 2013Q2

REPORT INFORMATION
  Report Type: Spontaneous
  Country: US (occurrence: None)
  Receive Date: 20130412
  Receipt Date: 20130412
  Transmission Date: 20140414
  Serious: Yes (Hospitalization)
  Sender: FDA-Public Use
  Company Number: US-DEXPHARM-20130143

PATIENT
  Age: 62 Year
  Sex: Male

DRUGS (1)
  1. TEGADERM [Suspect]

REACTIONS (2)
  - Catheter site erosion [None]
  - Dermatitis contact [None]
